FAERS Safety Report 6735930-9 (Version None)
Quarter: 2010Q2

REPORT INFORMATION
  Report Type: 
  Country: None (occurrence: None)
  Receive Date: 20100521
  Receipt Date: 20100514
  Transmission Date: 20101027
  Serious: Yes (Death, Life-Threatening)
  Sender: FDA-Public Use
  Company Number: B0647861A

PATIENT
  Sex: Female
  Weight: 65 kg

DRUGS (1)
  1. HYCAMTIN [Suspect]
     Indication: SMALL CELL LUNG CANCER RECURRENT
     Dosage: 3MG PER DAY
     Route: 048
     Dates: start: 20100316, end: 20100320

REACTIONS (2)
  - NEUTROPENIC SEPSIS [None]
  - PNEUMONIA [None]
